FAERS Safety Report 17268675 (Version 2)
Quarter: 2020Q1

REPORT INFORMATION
  Report Type: Report from Study
  Country: CA (occurrence: CA)
  Receive Date: 20200114
  Receipt Date: 20200205
  Transmission Date: 20200409
  Serious: No
  Sender: FDA-Public Use
  Company Number: CA-009507513-1910CAN011905

PATIENT
  Sex: Female
  Weight: 71 kg

DRUGS (3)
  1. PEMBROLIZUMAB. [Suspect]
     Active Substance: PEMBROLIZUMAB
     Dosage: 200 MILLIGRAM, Q 3 WEEKS, STRENGTH: 2MG/KG
     Route: 042
     Dates: start: 2019
  2. PEMBROLIZUMAB. [Suspect]
     Active Substance: PEMBROLIZUMAB
     Indication: MALIGNANT MELANOMA
     Dosage: 200 MILLIGRAM, Q 3 WEEKS, STRENGTH: 2MG/KG
     Route: 042
     Dates: start: 20190925, end: 2019
  3. PEMBROLIZUMAB. [Suspect]
     Active Substance: PEMBROLIZUMAB
     Dosage: 200 MILLIGRAM, Q 3 WEEKS, STRENGTH: 2MG/KG
     Route: 042

REACTIONS (10)
  - Weight decreased [Unknown]
  - Fatigue [Unknown]
  - Pulse abnormal [Unknown]
  - Weight increased [Unknown]
  - Blood pressure abnormal [Unknown]
  - Dry mouth [Unknown]
  - Sleep disorder [Unknown]
  - Oesophagitis [Unknown]
  - Somnolence [Unknown]
  - Malaise [Unknown]

NARRATIVE: CASE EVENT DATE: 2019
